FAERS Safety Report 11688522 (Version 1)
Quarter: 2015Q4

REPORT INFORMATION
  Report Type: Report from Study
  Country: US (occurrence: US)
  Receive Date: 20151101
  Receipt Date: 20151101
  Transmission Date: 20160304
  Serious: Yes (Other)
  Sender: FDA-Public Use
  Company Number: US-AMGEN-USASL2015114256

PATIENT
  Age: 38 Year
  Sex: Male

DRUGS (1)
  1. ENBREL [Suspect]
     Active Substance: ETANERCEPT
     Indication: POLYMYOSITIS
     Dosage: 50 MG, QWK
     Route: 065
     Dates: start: 200907

REACTIONS (4)
  - Off label use [Unknown]
  - Decubitus ulcer [Unknown]
  - Cellulitis [Unknown]
  - No therapeutic response [Unknown]

NARRATIVE: CASE EVENT DATE: 200907
